FAERS Safety Report 24120772 (Version 1)
Quarter: 2024Q3

REPORT INFORMATION
  Report Type: Spontaneous
  Country: US (occurrence: US)
  Receive Date: 20240722
  Receipt Date: 20240722
  Transmission Date: 20241017
  Serious: No
  Sender: TOLMAR
  Company Number: US-TOLMAR, INC.-24US050264

PATIENT
  Age: 57 Year
  Sex: Male

DRUGS (2)
  1. JATENZO [Suspect]
     Active Substance: TESTOSTERONE UNDECANOATE
     Indication: Blood testosterone decreased
     Dosage: 316 MILLIGRAM, BID
     Route: 048
     Dates: start: 2023
  2. JATENZO [Suspect]
     Active Substance: TESTOSTERONE UNDECANOATE
     Dosage: 158 MILLIGRAM, BID
     Route: 048
     Dates: start: 20240607

REACTIONS (5)
  - Asthenia [Recovered/Resolved]
  - Intentional product use issue [Recovered/Resolved]
  - Blood testosterone abnormal [Unknown]
  - Therapy interrupted [Recovered/Resolved]
  - Product availability issue [Recovered/Resolved]

NARRATIVE: CASE EVENT DATE: 20240601
